FAERS Safety Report 23679301 (Version 1)
Quarter: 2024Q1

REPORT INFORMATION
  Report Type: Spontaneous
  Country: CA (occurrence: None)
  Receive Date: 20240327
  Receipt Date: 20240327
  Transmission Date: 20240410
  Serious: Yes (Other)
  Sender: FDA-Public Use
  Company Number: 2024A071521

PATIENT
  Age: 71 Year
  Sex: Female

DRUGS (9)
  1. DURVALUMAB [Suspect]
     Active Substance: DURVALUMAB
     Indication: Metastatic malignant melanoma
  2. DURVALUMAB [Suspect]
     Active Substance: DURVALUMAB
     Indication: K-ras gene mutation
  3. DURVALUMAB [Suspect]
     Active Substance: DURVALUMAB
     Indication: BRAF gene mutation
  4. DURVALUMAB [Suspect]
     Active Substance: DURVALUMAB
     Indication: Metastatic malignant melanoma
  5. DURVALUMAB [Suspect]
     Active Substance: DURVALUMAB
     Indication: K-ras gene mutation
  6. DURVALUMAB [Suspect]
     Active Substance: DURVALUMAB
     Indication: BRAF gene mutation
  7. TRAMETINIB [Suspect]
     Active Substance: TRAMETINIB
     Indication: Metastatic malignant melanoma
  8. TRAMETINIB [Suspect]
     Active Substance: TRAMETINIB
     Indication: K-ras gene mutation
  9. TRAMETINIB [Suspect]
     Active Substance: TRAMETINIB
     Indication: BRAF gene mutation

REACTIONS (3)
  - Interstitial lung disease [Not Recovered/Not Resolved]
  - Organising pneumonia [Not Recovered/Not Resolved]
  - Therapy partial responder [Not Recovered/Not Resolved]
